FAERS Safety Report 7900454-X (Version None)
Quarter: 2011Q4

REPORT INFORMATION
  Report Type: 
  Country: None (occurrence: None)
  Receive Date: 20111108
  Receipt Date: 20111031
  Transmission Date: 20120403
  Serious: Yes (Other)
  Sender: FDA-Public Use
  Company Number: CA-CELGENEUS-028-21880-11103542

PATIENT
  Sex: Male

DRUGS (8)
  1. FLOMAX [Concomitant]
     Dosage: .4 MILLIGRAM
     Route: 065
  2. REVLIMID [Suspect]
     Dosage: 25 MILLIGRAM
     Route: 048
  3. PROSCAR [Concomitant]
     Dosage: 5 MILLIGRAM
     Route: 065
  4. FOSAMAX [Concomitant]
     Indication: JAW DISORDER
     Dosage: 70 MILLIGRAM
     Route: 065
  5. LYRICA [Concomitant]
     Dosage: 150 MILLIGRAM
     Route: 065
  6. DEXAMETHASONE [Concomitant]
     Dosage: 24 MILLIGRAM
     Route: 065
  7. FOSAMAX [Concomitant]
     Dosage: 70 MILLIGRAM
     Route: 065
  8. ASPIRIN [Concomitant]
     Dosage: 81 MILLIGRAM
     Route: 065

REACTIONS (2)
  - JAW DISORDER [None]
  - BONE LESION [None]
